FAERS Safety Report 5024172-3 (Version None)
Quarter: 2006Q2

REPORT INFORMATION
  Report Type: 
  Country: None (occurrence: None)
  Receive Date: 20060607
  Receipt Date: 20060522
  Transmission Date: 20061013
  Serious: Yes (Other)
  Sender: FDA-Public Use
  Company Number: 224825

PATIENT
  Age: 72 Year
  Sex: Male

DRUGS (5)
  1. RAPTIVA [Suspect]
     Indication: PSORIASIS
     Dosage: SEE IMAGE
     Dates: start: 20050601
  2. ANTIBIOTICS [Suspect]
  3. PROPRANOLOL (PROPRANOLOL HYDROCHLORIDE) [Concomitant]
  4. ACETYLSALICYLIC ACID (ASPRIN) [Concomitant]
  5. ATORVASTATIN CALCIUM [Concomitant]

REACTIONS (6)
  - EMPHYSEMA [None]
  - INTERSTITIAL LUNG DISEASE [None]
  - PNEUMONIA MYCOPLASMAL [None]
  - PULMONARY FIBROSIS [None]
  - THERAPY NON-RESPONDER [None]
  - WEIGHT DECREASED [None]
